FAERS Safety Report 6231303-6 (Version None)
Quarter: 2009Q2

REPORT INFORMATION
  Report Type: 
  Country: None (occurrence: None)
  Receive Date: 20090616
  Receipt Date: 20090616
  Transmission Date: 20091009
  Serious: Yes (Other)
  Sender: FDA-Public Use
  Company Number: US-PFIZER INC-2009162376

PATIENT
  Sex: Male
  Weight: 126.98 kg

DRUGS (16)
  1. EXUBERA [Suspect]
     Indication: DIABETES MELLITUS
  2. GLIPIZIDE [Suspect]
     Indication: DIABETES MELLITUS
  3. GLIBENCLAMIDE [Suspect]
     Indication: DIABETES MELLITUS
     Dosage: UNK
  4. XANAX [Concomitant]
  5. BYETTA [Concomitant]
  6. ALTACE [Concomitant]
  7. PLAVIX [Concomitant]
  8. TOPROL-XL [Concomitant]
  9. TRAMADOL HYDROCHLORIDE [Concomitant]
  10. AMBIEN [Concomitant]
  11. NIASPAN [Concomitant]
  12. FISH OIL [Concomitant]
  13. ACETYLSALICYLIC ACID [Concomitant]
  14. MULTI-VITAMINS [Concomitant]
  15. MINERALS NOS [Concomitant]
  16. ANALGESICS [Concomitant]

REACTIONS (2)
  - BLOOD GLUCOSE INCREASED [None]
  - MEDICAL DEVICE COMPLICATION [None]
